FAERS Safety Report 8371718-3 (Version None)
Quarter: 2012Q2

REPORT INFORMATION
  Report Type: 
  Country: None (occurrence: None)
  Receive Date: 20120518
  Receipt Date: 20120508
  Transmission Date: 20120825
  Serious: Yes (Other)
  Sender: FDA-Public Use
  Company Number: US-ELI_LILLY_AND_COMPANY-US201205002638

PATIENT
  Sex: Female
  Weight: 90.703 kg

DRUGS (7)
  1. BYETTA [Suspect]
     Indication: INSULIN-REQUIRING TYPE 2 DIABETES MELLITUS
     Dosage: 5 UG, BID
     Route: 058
     Dates: start: 20090101
  2. BYETTA [Suspect]
     Dosage: 5 UG, BID
     Route: 058
     Dates: start: 20120417, end: 20120501
  3. LANTUS [Concomitant]
     Indication: TYPE 2 DIABETES MELLITUS
     Dosage: 54 U, EACH EVENING
     Route: 058
     Dates: start: 20120417
  4. GLUCOPHAGE [Concomitant]
     Indication: TYPE 2 DIABETES MELLITUS
     Dosage: 1000 MG, BID
     Route: 048
  5. LANOXIN [Concomitant]
     Dosage: UNK, UNKNOWN
  6. LANOXIN [Concomitant]
     Dosage: UNK, UNKNOWN
  7. GLIMEPIRIDE [Concomitant]
     Indication: TYPE 2 DIABETES MELLITUS
     Dosage: 2 MG, QD
     Route: 048

REACTIONS (2)
  - RASH GENERALISED [None]
  - WEIGHT DECREASED [None]
